FAERS Safety Report 7494538-0 (Version None)
Quarter: 2011Q2

REPORT INFORMATION
  Report Type: 
  Country: None (occurrence: None)
  Receive Date: 20110520
  Receipt Date: 20110510
  Transmission Date: 20111010
  Serious: Yes (Hospitalization)
  Sender: FDA-Public Use
  Company Number: PL-JNJFOC-20110308929

PATIENT
  Sex: Female
  Weight: 66 kg

DRUGS (9)
  1. GOLIMUMAB [Suspect]
     Route: 058
     Dates: start: 20110117
  2. METHOTREXATE [Suspect]
     Indication: RHEUMATOID ARTHRITIS
     Route: 048
     Dates: start: 20060715, end: 20070804
  3. GOLIMUMAB [Suspect]
     Route: 058
     Dates: start: 20110211
  4. LOSARTAN POTASSIUM [Concomitant]
     Route: 048
     Dates: start: 20080315
  5. ACIDUM FOLICUM [Concomitant]
     Route: 048
     Dates: start: 19990101
  6. METHOTREXATE [Concomitant]
     Route: 048
     Dates: start: 20080712
  7. GOLIMUMAB [Suspect]
     Indication: RHEUMATOID ARTHRITIS
     Route: 058
     Dates: start: 20061130
  8. GOLIMUMAB [Suspect]
     Route: 058
     Dates: start: 20101222
  9. PLACEBO [Suspect]
     Indication: RHEUMATOID ARTHRITIS
     Route: 058
     Dates: start: 20060807

REACTIONS (2)
  - SARCOIDOSIS [None]
  - BONE PAIN [None]
